FAERS Safety Report 18524658 (Version 4)
Quarter: 2021Q2

REPORT INFORMATION
  Report Type: Spontaneous
  Country: US (occurrence: US)
  Receive Date: 20201120
  Receipt Date: 20210621
  Transmission Date: 20210717
  Serious: Yes (Hospitalization, Other)
  Sender: FDA-Public Use
  Company Number: US-ALXN-A202016754

PATIENT
  Age: 77 Year
  Sex: Female

DRUGS (2)
  1. SOLIRIS [Suspect]
     Active Substance: ECULIZUMAB
     Indication: MYASTHENIA GRAVIS
     Dosage: UNK
     Route: 042
     Dates: start: 201810, end: 202012
  2. SOLIRIS [Suspect]
     Active Substance: ECULIZUMAB
     Dosage: UNK
     Route: 042
     Dates: start: 20210401

REACTIONS (20)
  - Neck pain [Not Recovered/Not Resolved]
  - Hypotension [Unknown]
  - Hypersomnia [Unknown]
  - Myasthenia gravis crisis [Recovering/Resolving]
  - Cerebrospinal fluid leakage [Not Recovered/Not Resolved]
  - Rhinorrhoea [Not Recovered/Not Resolved]
  - Dry mouth [Not Recovered/Not Resolved]
  - Anaemia [Not Recovered/Not Resolved]
  - Pain [Not Recovered/Not Resolved]
  - Dysphagia [Unknown]
  - Head injury [Not Recovered/Not Resolved]
  - Eye contusion [Not Recovered/Not Resolved]
  - Scratch [Unknown]
  - Fall [Not Recovered/Not Resolved]
  - Loss of consciousness [Recovered/Resolved]
  - Atrial fibrillation [Not Recovered/Not Resolved]
  - Contusion [Not Recovered/Not Resolved]
  - Face oedema [Not Recovered/Not Resolved]
  - Eyelid ptosis [Not Recovered/Not Resolved]
  - Arthralgia [Not Recovered/Not Resolved]

NARRATIVE: CASE EVENT DATE: 202011
